FAERS Safety Report 25205763 (Version 1)
Quarter: 2025Q2

REPORT INFORMATION
  Report Type: Report from Study
  Country: US (occurrence: US)
  Receive Date: 20250417
  Receipt Date: 20250417
  Transmission Date: 20250717
  Serious: Yes (Other)
  Sender: CHEPLAPHARM
  Company Number: None

PATIENT
  Age: 68 Year
  Sex: Male

DRUGS (8)
  1. OLANZAPINE [Suspect]
     Active Substance: OLANZAPINE
     Indication: Agitation
     Dosage: DAILY DOSE: 15 MILLIGRAM
     Route: 048
  2. OLANZAPINE [Suspect]
     Active Substance: OLANZAPINE
     Indication: Agitation
     Dosage: REDUCTION IN OLANZAPINE FROM 15 MG TO 5 MG ORAL DAILY?DAILY DOSE: 5 MILLIGRAM
     Route: 048
  3. HALOPERIDOL [Suspect]
     Active Substance: HALOPERIDOL
     Indication: Behaviour disorder
     Route: 042
  4. DEXAMETHASONE [Concomitant]
     Active Substance: DEXAMETHASONE
     Indication: Seizure prophylaxis
     Dosage: DAILY DOSE: 40 MILLIGRAM
     Route: 048
  5. DEXAMETHASONE [Concomitant]
     Active Substance: DEXAMETHASONE
     Indication: Seizure prophylaxis
     Dosage: FOR LESS THAN 3 MONTHS?DAILY DOSE: 20 MILLIGRAM
     Route: 048
  6. DEXAMETHASONE [Concomitant]
     Active Substance: DEXAMETHASONE
     Indication: Seizure prophylaxis
     Dosage: TAPERING TO 4 MG DAILY ?DAILY DOSE: 4 MILLIGRAM
  7. LEVETIRACETAM [Concomitant]
     Active Substance: LEVETIRACETAM
     Indication: Seizure prophylaxis
     Dosage: UP TO 1500 MG DAILY?DAILY DOSE: 1500 MILLIGRAM
  8. LEVETIRACETAM [Concomitant]
     Active Substance: LEVETIRACETAM
     Indication: Seizure prophylaxis

REACTIONS (6)
  - Delirium [Recovering/Resolving]
  - Thrombocytopenia [Unknown]
  - Encephalopathy [Unknown]
  - Tremor [Unknown]
  - Muscle rigidity [Unknown]
  - Blood lactic acid increased [Unknown]
